FAERS Safety Report 10070334 (Version 1)
Quarter: 2014Q2

REPORT INFORMATION
  Report Type: Spontaneous
  Country: FR (occurrence: FR)
  Receive Date: 20140410
  Receipt Date: 20140410
  Transmission Date: 20141212
  Serious: Yes (Hospitalization)
  Sender: FDA-Public Use
  Company Number: FR-PFIZER INC-2014099771

PATIENT
  Age: 81 Year
  Sex: Female

DRUGS (6)
  1. CORDARONE [Suspect]
     Dosage: UNK
     Route: 065
  2. ATORVASTATIN CALCIUM [Interacting]
     Dosage: UNK
     Route: 065
  3. XARELTO [Interacting]
     Dosage: UNK
     Route: 048
     Dates: end: 20131220
  4. INEXIUM [Interacting]
     Dosage: UNK
     Route: 065
  5. LASILIX [Concomitant]
     Dosage: UNK
  6. LEVOTHYROX [Concomitant]
     Dosage: UNK

REACTIONS (4)
  - Drug interaction [Unknown]
  - Petechiae [Recovering/Resolving]
  - Purpura [Recovered/Resolved]
  - Renal failure [Recovering/Resolving]
